FAERS Safety Report 5573969-X (Version None)
Quarter: 2007Q4

REPORT INFORMATION
  Report Type: 
  Country: None (occurrence: None)
  Receive Date: 20071220
  Receipt Date: 20071207
  Transmission Date: 20080405
  Serious: No
  Sender: FDA-Public Use
  Company Number: US021911

PATIENT
  Sex: Female

DRUGS (5)
  1. FENTORA [Suspect]
     Indication: ARTHRALGIA
     Dosage: 800 MG BUCCAL
     Route: 002
  2. OPANA [Concomitant]
  3. MORPHINE [Concomitant]
  4. OXYCONTIN [Concomitant]
  5. FENTANYL [Concomitant]

REACTIONS (3)
  - DRUG INEFFECTIVE [None]
  - DRY MOUTH [None]
  - ORAL PAIN [None]
